FAERS Safety Report 9029133 (Version 1)
Quarter: 2013Q1

REPORT INFORMATION
  Report Type: Spontaneous
  Country: GB (occurrence: GB)
  Receive Date: 20130124
  Receipt Date: 20130124
  Transmission Date: 20140127
  Serious: Yes (Other)
  Sender: FDA-Public Use
  Company Number: GB-UCBSA-075559

PATIENT
  Sex: 0

DRUGS (2)
  1. CIMZIA [Suspect]
     Dosage: LOADING DOSE
  2. CIMZIA [Suspect]
     Dosage: EVERY OTHER WEEK
     Dates: end: 201208

REACTIONS (2)
  - Nasal operation [Recovered/Resolved]
  - Adverse event [Unknown]
